FAERS Safety Report 23409777 (Version 1)
Quarter: 2024Q1

REPORT INFORMATION
  Report Type: Spontaneous
  Country: FR (occurrence: FR)
  Receive Date: 20240117
  Receipt Date: 20240117
  Transmission Date: 20240410
  Serious: Yes (Hospitalization)
  Sender: FDA-Public Use
  Company Number: None

PATIENT
  Age: 73 Year
  Sex: Male

DRUGS (2)
  1. CIPROFLOXACIN [Suspect]
     Active Substance: CIPROFLOXACIN
     Indication: Abscess
     Dosage: 1500 MG
     Route: 048
     Dates: start: 20231211, end: 20240102
  2. CIPROFLOXACIN [Suspect]
     Active Substance: CIPROFLOXACIN
     Indication: Osteitis

REACTIONS (1)
  - Sciatic nerve palsy [Not Recovered/Not Resolved]

NARRATIVE: CASE EVENT DATE: 20231215
